FAERS Safety Report 16606707 (Version 2)
Quarter: 2019Q3

REPORT INFORMATION
  Report Type: Spontaneous
  Country: AU (occurrence: AU)
  Receive Date: 20190722
  Receipt Date: 20190726
  Transmission Date: 20191004
  Serious: Yes (Death)
  Sender: FDA-Public Use
  Company Number: AU-ACTELION-A-CH2019-193101

PATIENT
  Sex: Male

DRUGS (3)
  1. ADEMPAS [Concomitant]
     Active Substance: RIOCIGUAT
     Dosage: 2.5 MG, TID
     Route: 048
     Dates: start: 201503, end: 20190707
  2. TRACLEER [Suspect]
     Active Substance: BOSENTAN
     Indication: RIGHT VENTRICULAR FAILURE
  3. TRACLEER [Suspect]
     Active Substance: BOSENTAN
     Indication: PULMONARY HYPERTENSION
     Dosage: 125 MG, BID
     Route: 048
     Dates: start: 201805, end: 20190707

REACTIONS (4)
  - Pulmonary hypertension [Fatal]
  - Right ventricular failure [Fatal]
  - Disease progression [Fatal]
  - Hypoxia [Fatal]
